FAERS Safety Report 6090764-6 (Version None)
Quarter: 2009Q1

REPORT INFORMATION
  Report Type: 
  Country: None (occurrence: None)
  Receive Date: 20090223
  Receipt Date: 20090211
  Transmission Date: 20090719
  Serious: Yes (Death, Hospitalization)
  Sender: FDA-Public Use
  Company Number: 2009AP000425

PATIENT
  Age: 19 Year
  Sex: Female

DRUGS (5)
  1. CYCLOSPORINE [Suspect]
     Indication: PROPHYLAXIS AGAINST GRAFT VERSUS HOST DISEASE
     Dosage: 2 MG
  2. METHOTREXATE [Suspect]
     Indication: PROPHYLAXIS AGAINST GRAFT VERSUS HOST DISEASE
  3. METHYLPREDNISOLONE 4MG TAB [Suspect]
     Indication: PROPHYLAXIS AGAINST GRAFT VERSUS HOST DISEASE
  4. CYCLOPHOSPHAMIDE [Suspect]
  5. PREDNISONE [Suspect]

REACTIONS (14)
  - ABDOMINAL PAIN [None]
  - ACUTE GRAFT VERSUS HOST DISEASE IN LIVER [None]
  - CONSTIPATION [None]
  - GRAND MAL CONVULSION [None]
  - HAEMOGLOBIN DECREASED [None]
  - HEPATIC FAILURE [None]
  - HEPATOCELLULAR INJURY [None]
  - HEPATOTOXICITY [None]
  - HERPES ZOSTER [None]
  - HYPONATRAEMIA [None]
  - ILEUS [None]
  - PLATELET COUNT DECREASED [None]
  - VARICELLA ZOSTER VIRUS SEROLOGY POSITIVE [None]
  - VOMITING [None]
